FAERS Safety Report 8911583 (Version 2)
Quarter: 2012Q4

REPORT INFORMATION
  Report Type: 
  Country: FR (occurrence: FR)
  Receive Date: 20121115
  Receipt Date: 20121121
  Transmission Date: 20130627
  Serious: Yes (Hospitalization, Other)
  Sender: FDA-Public Use
  Company Number: FR-PFIZER INC-2012285482

PATIENT
  Age: 83 Year
  Sex: Male

DRUGS (11)
  1. TRIATEC [Suspect]
     Indication: HYPERTENSION ARTERIAL
     Dosage: 2.5 mg, daily
     Route: 048
     Dates: end: 201207
  2. MONO-TILDIEM [Suspect]
     Indication: HYPERTENSION ARTERIAL
     Dosage: 200 mg, daily
     Route: 048
     Dates: start: 200808, end: 201207
  3. LASILIX [Suspect]
     Indication: HYPERTENSION ARTERIAL
     Dosage: 500 mg, 1x/day
     Route: 048
  4. CALCIDIA [Concomitant]
     Dosage: UNK
  5. DAFALGAN [Concomitant]
     Dosage: UNK
  6. GAVISCON [Concomitant]
     Dosage: UNK
  7. INEXIUM [Concomitant]
     Dosage: UNK
  8. ONE-ALPHA [Concomitant]
     Dosage: UNK
  9. ZYRTEC [Concomitant]
     Dosage: UNK
  10. LOVENOX [Concomitant]
     Dosage: UNK
  11. POLYSTYRENE SULFONATE CALCIUM [Concomitant]
     Dosage: UNK

REACTIONS (5)
  - Hypotension [Recovered/Resolved]
  - Fall [Recovered/Resolved]
  - Head injury [Recovered/Resolved]
  - Malaise [Recovered/Resolved]
  - Haemoglobin decreased [Recovered/Resolved]
